FAERS Safety Report 5880738-X (Version None)
Quarter: 2008Q3

REPORT INFORMATION
  Report Type: 
  Country: None (occurrence: None)
  Receive Date: 20080912
  Receipt Date: 20080701
  Transmission Date: 20090109
  Serious: No
  Sender: FDA-Public Use
  Company Number: US-ABBOTT-08P-163-0455796-00

PATIENT
  Sex: Female
  Weight: 67.192 kg

DRUGS (10)
  1. HUMIRA [Suspect]
     Indication: CROHN'S DISEASE
     Route: 058
     Dates: start: 20080520, end: 20080520
  2. HUMIRA [Suspect]
     Route: 058
     Dates: start: 20080604, end: 20080604
  3. HUMIRA [Suspect]
     Route: 058
     Dates: start: 20080601, end: 20080721
  4. PROVELLA-14 [Concomitant]
     Indication: MENOPAUSE
     Route: 048
  5. PANTOPRAZOLE [Concomitant]
     Indication: DYSPEPSIA
     Route: 048
  6. VIGRAN [Concomitant]
     Indication: ROUTINE HEALTH MAINTENANCE
     Route: 048
  7. CALCIUM CARBONATE [Concomitant]
     Indication: ROUTINE HEALTH MAINTENANCE
     Route: 048
  8. CYANOCOBALAMIN [Concomitant]
     Indication: ROUTINE HEALTH MAINTENANCE
     Route: 048
  9. TETRYZOLINE HYDROCHLORIDE [Concomitant]
     Indication: DRY EYE
     Route: 047
  10. ACETAMINOPHEN [Concomitant]
     Indication: PAIN
     Route: 048

REACTIONS (3)
  - ARTHRALGIA [None]
  - BONE PAIN [None]
  - MUSCULOSKELETAL STIFFNESS [None]
